FAERS Safety Report 23861533 (Version 1)
Quarter: 2024Q2

REPORT INFORMATION
  Report Type: Report from Study
  Country: US (occurrence: None)
  Receive Date: 20240516
  Receipt Date: 20240516
  Transmission Date: 20240716
  Serious: Yes (Other)
  Sender: FDA-Public Use
  Company Number: 2024A109306

PATIENT
  Sex: Female

DRUGS (1)
  1. TEZSPIRE [Suspect]
     Active Substance: TEZEPELUMAB-EKKO

REACTIONS (7)
  - Pleuritic pain [Unknown]
  - Blood pressure increased [Unknown]
  - Pelvic pain [Unknown]
  - Leukocytosis [Unknown]
  - Major depression [Unknown]
  - Back pain [Unknown]
  - Asthma [Unknown]
